FAERS Safety Report 6685982-X (Version None)
Quarter: 2010Q2

REPORT INFORMATION
  Report Type: 
  Country: None (occurrence: None)
  Receive Date: 20100419
  Receipt Date: 20100409
  Transmission Date: 20101027
  Serious: Yes (Hospitalization, Other)
  Sender: FDA-Public Use
  Company Number: PHHY2009FR48631

PATIENT
  Sex: Male

DRUGS (8)
  1. EXELON [Suspect]
     Indication: DEMENTIA ALZHEIMER'S TYPE
     Dosage: 9.5 MG DAILY
     Route: 062
     Dates: end: 20091012
  2. EXELON [Suspect]
     Dosage: UNK
     Route: 062
  3. SEROPLEX [Suspect]
     Dosage: 10 MG IN MORNING AND 5 MG IN EVENING
     Dates: end: 20091012
  4. SEROPLEX [Suspect]
     Dosage: 5 MG/DAY
  5. ALDACTAZINE [Concomitant]
  6. GINKOR [Concomitant]
  7. METEOSPASMYL [Concomitant]
  8. GARDENAL [Concomitant]

REACTIONS (2)
  - CONVULSION [None]
  - CREATININE RENAL CLEARANCE DECREASED [None]
